FAERS Safety Report 15503531 (Version 1)
Quarter: 2018Q4

REPORT INFORMATION
  Report Type: Spontaneous
  Country: US (occurrence: US)
  Receive Date: 20181016
  Receipt Date: 20181016
  Transmission Date: 20190205
  Serious: Yes (Hospitalization)
  Sender: FDA-Public Use
  Company Number: None

PATIENT
  Age: 72 Year
  Sex: Female

DRUGS (1)
  1. DOFETILIDE. [Suspect]
     Active Substance: DOFETILIDE
     Indication: RHEUMATOID ARTHRITIS
     Route: 048
     Dates: start: 20180709

REACTIONS (3)
  - Skin abrasion [None]
  - Fall [None]
  - Procedural pain [None]

NARRATIVE: CASE EVENT DATE: 20181011
